FAERS Safety Report 16311936 (Version 1)
Quarter: 2019Q2

REPORT INFORMATION
  Report Type: Spontaneous
  Country: US (occurrence: US)
  Receive Date: 20190514
  Receipt Date: 20190514
  Transmission Date: 20190711
  Serious: No
  Sender: FDA-Public Use
  Company Number: US-GLENMARK PHARMACEUTICALS-2019GMK039633

PATIENT

DRUGS (1)
  1. TRIAMCINOLONE ACETONIDE OINTMENT USP [Suspect]
     Active Substance: TRIAMCINOLONE ACETONIDE
     Indication: RADIATION SKIN INJURY
     Dosage: UNK, BID (TWICE DAILY FOR 5 DAYS, WITH 2 DAYS OFF)
     Route: 061
     Dates: start: 20190110, end: 20190131

REACTIONS (4)
  - Burning sensation [Recovered/Resolved]
  - Drug effective for unapproved indication [Unknown]
  - Rash erythematous [Not Recovered/Not Resolved]
  - Product quality issue [Unknown]

NARRATIVE: CASE EVENT DATE: 20190110
